FAERS Safety Report 4528722-2 (Version None)
Quarter: 2004Q4

REPORT INFORMATION
  Report Type: 
  Country: None (occurrence: None)
  Receive Date: 20041202
  Receipt Date: 20041015
  Transmission Date: 20050328
  Serious: No
  Sender: FDA-Public Use
  Company Number: 200420848BWH

PATIENT
  Age: 31 Year
  Sex: Male

DRUGS (1)
  1. LEVITRA [Suspect]
     Indication: PREMATURE EJACULATION
     Dosage: 5 MG, QD, ORAL
     Route: 048
     Dates: start: 20041001, end: 20041008

REACTIONS (1)
  - PENILE PAIN [None]
